FAERS Safety Report 5796301-5 (Version None)
Quarter: 2008Q3

REPORT INFORMATION
  Report Type: 
  Country: None (occurrence: None)
  Receive Date: 20080701
  Receipt Date: 20080619
  Transmission Date: 20090109
  Serious: Yes (Death, Other)
  Sender: FDA-Public Use
  Company Number: JP-BAYER-200821023GPV

PATIENT
  Age: 63 Year
  Sex: Female

DRUGS (11)
  1. FLUDARABINE PHOSPHATE [Suspect]
     Indication: CORD BLOOD TRANSPLANT THERAPY
     Route: 065
  2. MELPHALAN [Suspect]
     Indication: ACUTE MYELOID LEUKAEMIA
  3. TACROLIMUS [Suspect]
     Indication: PROPHYLAXIS AGAINST GRAFT VERSUS HOST DISEASE
     Route: 042
  4. TACROLIMUS [Suspect]
     Route: 048
  5. METHOTREXATE [Suspect]
     Indication: PROPHYLAXIS AGAINST GRAFT VERSUS HOST DISEASE
  6. METHOTREXATE [Suspect]
  7. TRIMETHOPRIM + SULFAMETHOXAZOLE [Concomitant]
     Indication: ANTIFUNGAL PROPHYLAXIS
  8. FLUOROQUINOLONES [Concomitant]
     Indication: ANTIBIOTIC PROPHYLAXIS
  9. FLUCONAZOLE [Concomitant]
     Indication: ANTIFUNGAL PROPHYLAXIS
  10. ACYCLOVIR SODIUM [Concomitant]
     Indication: ANTIVIRAL PROPHYLAXIS
  11. NEUPOGEN [Concomitant]
     Indication: PROPHYLAXIS
     Route: 042

REACTIONS (3)
  - ENGRAFTMENT SYNDROME [None]
  - MULTI-ORGAN FAILURE [None]
  - STAPHYLOCOCCAL BACTERAEMIA [None]
